FAERS Safety Report 18855479 (Version 2)
Quarter: 2021Q1

REPORT INFORMATION
  Report Type: Spontaneous
  Country: CN (occurrence: CN)
  Receive Date: 20210205
  Receipt Date: 20210212
  Transmission Date: 20210420
  Serious: Yes (Life-Threatening, Hospitalization, Other)
  Sender: FDA-Public Use
  Company Number: CN-PFIZER INC-2021093981

PATIENT

DRUGS (1)
  1. CELEBREX [Suspect]
     Active Substance: CELECOXIB
     Dosage: UNK
     Route: 048
     Dates: start: 20210130

REACTIONS (8)
  - Erythema [Recovering/Resolving]
  - Drug hypersensitivity [Not Recovered/Not Resolved]
  - Respiration abnormal [Recovering/Resolving]
  - Product use complaint [Unknown]
  - Heart rate increased [Not Recovered/Not Resolved]
  - Skin swelling [Recovering/Resolving]
  - Rash [Not Recovered/Not Resolved]
  - Blood pressure abnormal [Recovering/Resolving]

NARRATIVE: CASE EVENT DATE: 20210130
